FAERS Safety Report 7324035-4 (Version None)
Quarter: 2011Q1

REPORT INFORMATION
  Report Type: 
  Country: None (occurrence: None)
  Receive Date: 20110301
  Receipt Date: 20100507
  Transmission Date: 20110831
  Serious: Yes (Other)
  Sender: FDA-Public Use
  Company Number: US-BAYER-201011776NA

PATIENT
  Sex: Female
  Weight: 54.545 kg

DRUGS (16)
  1. PRISTIQ [Concomitant]
     Indication: PRODUCT USED FOR UNKNOWN INDICATION
     Route: 065
  2. YASMIN [Suspect]
     Indication: CONTRACEPTION
     Dosage: UNK
     Route: 048
     Dates: start: 20020101, end: 20090101
  3. LORAZEPAM [Concomitant]
     Indication: PRODUCT USED FOR UNKNOWN INDICATION
     Route: 065
  4. NABUMETONE [Concomitant]
     Indication: PRODUCT USED FOR UNKNOWN INDICATION
     Route: 065
  5. KEFZOL [Concomitant]
     Indication: CHOLECYSTECTOMY
     Route: 065
     Dates: start: 20091102
  6. VERSED [Concomitant]
     Indication: CHOLECYSTECTOMY
     Route: 065
     Dates: start: 20091102
  7. LACTATED RINGER'S [Concomitant]
     Indication: CHOLECYSTECTOMY
     Route: 065
     Dates: start: 20091102
  8. OXYCET [Concomitant]
     Route: 065
     Dates: start: 20091102
  9. LEXAPRO [Concomitant]
     Indication: PRODUCT USED FOR UNKNOWN INDICATION
     Route: 065
  10. PERCOCET [Concomitant]
     Indication: CHOLECYSTECTOMY
     Route: 065
     Dates: start: 20091102
  11. DROSPIRENONE AND ETHINYL ESTRADIOL [Suspect]
     Indication: CONTRACEPTION
     Route: 048
     Dates: start: 20020101, end: 20090101
  12. ZOFRAN [Concomitant]
     Indication: CHOLECYSTECTOMY
     Route: 065
     Dates: start: 20091102
  13. KETOROLAC TROMETHAMINE [Concomitant]
     Indication: CHOLECYSTECTOMY
     Route: 065
     Dates: start: 20091102
  14. UNCODEABLE ^UNCLASSIFIABLE^ [Concomitant]
     Route: 065
     Dates: start: 20091102
  15. ALPRAZOLAM [Concomitant]
  16. FENTANYL [Concomitant]
     Indication: CHOLECYSTECTOMY
     Route: 065
     Dates: start: 20091102

REACTIONS (11)
  - ABDOMINAL PAIN [None]
  - VOMITING [None]
  - CHOLECYSTITIS CHRONIC [None]
  - CHOLELITHIASIS [None]
  - DIARRHOEA [None]
  - NAUSEA [None]
  - SKIN DISCOLOURATION [None]
  - LETHARGY [None]
  - DISCOMFORT [None]
  - ABDOMINAL PAIN UPPER [None]
  - DYSPEPSIA [None]
